FAERS Safety Report 4758500-0 (Version None)
Quarter: 2005Q3

REPORT INFORMATION
  Report Type: 
  Country: None (occurrence: None)
  Receive Date: 20050826
  Receipt Date: 20050815
  Transmission Date: 20060218
  Serious: Yes (Hospitalization)
  Sender: FDA-Public Use
  Company Number: 1515-102

PATIENT
  Age: 37 Year
  Sex: Female

DRUGS (3)
  1. VENOFER [Suspect]
     Indication: HYPOCHROMIC ANAEMIA
     Dosage: 100MG
     Dates: start: 20050617
  2. GYNOTARDYFERON (FOLIC ACID/FERROUS SULFATE) [Concomitant]
  3. KCL-RETARD ZYME (POTASSIUM CHLORIDE) [Concomitant]

REACTIONS (5)
  - CHILLS [None]
  - INFLAMMATION [None]
  - PYREXIA [None]
  - RENAL PAIN [None]
  - TACHYCARDIA [None]
